FAERS Safety Report 7539665-4 (Version None)
Quarter: 2011Q2

REPORT INFORMATION
  Report Type: 
  Country: None (occurrence: None)
  Receive Date: 20110609
  Receipt Date: 20110609
  Transmission Date: 20111010
  Serious: Yes (Other)
  Sender: FDA-Public Use
  Company Number: None

PATIENT
  Age: 55 Year
  Sex: Male
  Weight: 127.0072 kg

DRUGS (1)
  1. SIMVASTATIN [Suspect]
     Indication: BLOOD CHOLESTEROL INCREASED
     Dosage: 80MG DAILY PO
     Route: 048

REACTIONS (5)
  - PAIN IN EXTREMITY [None]
  - TENDON PAIN [None]
  - ARTHRALGIA [None]
  - MYALGIA [None]
  - ABASIA [None]
